FAERS Safety Report 6391477-3 (Version None)
Quarter: 2009Q4

REPORT INFORMATION
  Report Type: 
  Country: None (occurrence: None)
  Receive Date: 20091006
  Receipt Date: 20091006
  Transmission Date: 20100525
  Serious: Yes (Life-Threatening, Hospitalization, Disabling)
  Sender: FDA-Public Use
  Company Number: None

PATIENT
  Age: 46 Year
  Sex: Female
  Weight: 107.0489 kg

DRUGS (2)
  1. AVELOX [Suspect]
     Indication: HYPERSENSITIVITY
     Dosage: 1 TABLET DAILY BY MOUTH 1 PO
     Route: 048
     Dates: start: 20090930, end: 20090930
  2. AVELOX [Suspect]
     Indication: SINUS DISORDER
     Dosage: 1 TABLET DAILY BY MOUTH 1 PO
     Route: 048
     Dates: start: 20090930, end: 20090930

REACTIONS (12)
  - FAECAL INCONTINENCE [None]
  - GASTRIC DISORDER [None]
  - PAIN [None]
  - PHARYNGEAL OEDEMA [None]
  - PRURITUS [None]
  - RETCHING [None]
  - SKIN DISCOLOURATION [None]
  - SWELLING [None]
  - THROAT TIGHTNESS [None]
  - TONGUE OEDEMA [None]
  - URINARY INCONTINENCE [None]
  - VOMITING [None]
